FAERS Safety Report 9731109 (Version 3)
Quarter: 2014Q1

REPORT INFORMATION
  Report Type: Report from Study
  Country: US (occurrence: US)
  Receive Date: 20131203
  Receipt Date: 20140203
  Transmission Date: 20141002
  Serious: Yes (Other)
  Sender: FDA-Public Use
  Company Number: US-JNJFOC-20131115752

PATIENT
  Age: 42 Year
  Sex: Female

DRUGS (18)
  1. DURAGESIC [Suspect]
     Indication: PRODUCT USED FOR UNKNOWN INDICATION
     Route: 062
     Dates: start: 20131125
  2. DURAGESIC [Suspect]
     Indication: PRODUCT USED FOR UNKNOWN INDICATION
     Route: 062
     Dates: end: 20131122
  3. DURAGESIC [Suspect]
     Indication: PRODUCT USED FOR UNKNOWN INDICATION
     Route: 062
     Dates: end: 20140108
  4. ESTARYLLA [Concomitant]
     Indication: CONTRACEPTION
     Route: 065
  5. ESTARYLLA [Concomitant]
     Indication: PREMENSTRUAL SYNDROME
     Route: 065
  6. PROBIOTIC [Concomitant]
     Indication: GASTROINTESTINAL DISORDER
     Route: 065
  7. OMEPRAZOLE [Concomitant]
     Indication: DYSPEPSIA
     Route: 065
  8. FLUOXETINE [Concomitant]
     Indication: DEPRESSION
     Route: 065
  9. AMITRIPTYLINE [Concomitant]
     Indication: FIBROMYALGIA
     Route: 065
  10. AMITRIPTYLINE [Concomitant]
     Indication: SLEEP APNOEA SYNDROME
     Route: 065
  11. TIZANIDINE [Concomitant]
     Indication: MUSCLE RELAXANT THERAPY
     Route: 065
  12. FUROSEMIDE [Concomitant]
     Indication: OEDEMA
     Route: 065
     Dates: start: 201311
  13. KLOR-CON [Concomitant]
     Indication: BLOOD POTASSIUM DECREASED
     Route: 065
     Dates: start: 201311
  14. LORAZEPAM [Concomitant]
     Indication: ANXIETY
     Route: 065
     Dates: start: 201211
  15. CLARITIN [Concomitant]
     Indication: SEASONAL ALLERGY
     Route: 065
  16. BISMUTH SUBSALICYLATE [Concomitant]
     Indication: ABDOMINAL DISCOMFORT
     Route: 065
  17. VITAMIN D3 [Concomitant]
     Route: 065
  18. MULTIVITAMINS [Concomitant]
     Route: 065

REACTIONS (12)
  - Drug withdrawal syndrome [Recovered/Resolved]
  - Suicidal ideation [Recovered/Resolved]
  - Drug dose omission [Unknown]
  - Depression [Recovered/Resolved]
  - Malaise [Recovered/Resolved]
  - Feeding disorder [Recovered/Resolved]
  - Restless legs syndrome [Recovered/Resolved]
  - Treatment noncompliance [Unknown]
  - Formication [Recovered/Resolved]
  - Pruritus [Unknown]
  - Tremor [Recovered/Resolved]
  - Somnolence [Recovered/Resolved]
